APPROVED DRUG PRODUCT: M.V.I.-12 ADULT
Active Ingredient: ASCORBIC ACID; BIOTIN; CYANOCOBALAMIN; DEXPANTHENOL; ERGOCALCIFEROL; FOLIC ACID; NIACINAMIDE; PYRIDOXINE HYDROCHLORIDE; RIBOFLAVIN 5'-PHOSPHATE SODIUM; THIAMINE HYDROCHLORIDE; VITAMIN A; VITAMIN E
Strength: 20MG/ML;0.006MG/ML;0.05MCG/ML;1.5MG/ML;0.0005MG/ML;0.06MG/ML;4MG/ML;0.6MG/ML;0.36MG/ML;0.6MG/ML;0.1MG/ML;1MG/ML
Dosage Form/Route: INJECTABLE;INJECTION
Application: N008809 | Product #006
Applicant: HOSPIRA INC
Approved: Sep 9, 2004 | RLD: Yes | RS: No | Type: DISCN